FAERS Safety Report 21991769 (Version 4)
Quarter: 2023Q2

REPORT INFORMATION
  Report Type: Spontaneous
  Country: None (occurrence: DE)
  Receive Date: 20230214
  Receipt Date: 20230519
  Transmission Date: 20230721
  Serious: Yes (Other)
  Sender: FDA-Public Use
  Company Number: DE-Hill Dermaceuticals, Inc.-2137954

PATIENT
  Sex: Male

DRUGS (1)
  1. TOLAK [Suspect]
     Active Substance: FLUOROURACIL
     Indication: Actinic keratosis
     Route: 061
     Dates: start: 20230106, end: 20230121

REACTIONS (11)
  - Erythema [Not Recovered/Not Resolved]
  - Skin fissures [Not Recovered/Not Resolved]
  - Burning sensation [Not Recovered/Not Resolved]
  - Throat irritation [Not Recovered/Not Resolved]
  - Cheilitis [Not Recovered/Not Resolved]
  - Eye swelling [Not Recovered/Not Resolved]
  - Insomnia [Not Recovered/Not Resolved]
  - Application site burn [Not Recovered/Not Resolved]
  - Application site pain [Not Recovered/Not Resolved]
  - Application site inflammation [Not Recovered/Not Resolved]
  - Product quality issue [None]

NARRATIVE: CASE EVENT DATE: 20230101
